FAERS Safety Report 9704642 (Version 2)
Quarter: 2014Q1

REPORT INFORMATION
  Report Type: Spontaneous
  Country: JP (occurrence: JP)
  Receive Date: 20131122
  Receipt Date: 20140328
  Transmission Date: 20141002
  Serious: Yes (Other)
  Sender: FDA-Public Use
  Company Number: JP-PFIZER INC-2013331939

PATIENT
  Age: 73 Year
  Sex: Male

DRUGS (10)
  1. OXALIPLATIN [Suspect]
     Indication: COLORECTAL CANCER
     Dosage: 85 MG/M2, CYCLIC
     Dates: start: 200808
  2. OXALIPLATIN [Suspect]
     Dosage: 68 MG/M2, CYCLIC (3RD CYCLE)
     Dates: start: 200809
  3. FLUOROURACIL [Suspect]
     Indication: COLORECTAL CANCER
     Dosage: 400 MG/M2, CYCLIC
     Route: 040
     Dates: start: 200808
  4. FLUOROURACIL [Suspect]
     Dosage: 600 MG/M2, CYCLIC (22 H INFUSION)
     Route: 041
     Dates: start: 200808
  5. FLUOROURACIL [Suspect]
     Dosage: 400 MG/M2, CYCLIC (3RD CYCLE)
     Route: 040
     Dates: start: 200809
  6. FLUOROURACIL [Suspect]
     Dosage: 600 MG/M2, CYCLIC (22 H INFUSION) (3RD CYCLE)
     Route: 041
     Dates: start: 200809
  7. FOLINIC ACID [Suspect]
     Indication: COLORECTAL CANCER
     Dosage: CYCLIC
     Dates: start: 200808
  8. FOLINIC ACID [Suspect]
     Dosage: 3RD CYCLE
     Dates: start: 200809
  9. BEVACIZUMAB [Suspect]
     Indication: COLORECTAL CANCER
     Dosage: 5 MG/KG, CYCLIC
     Dates: start: 200808
  10. BEVACIZUMAB [Suspect]
     Dosage: UNK (3RD CYCLE)
     Dates: start: 200809

REACTIONS (5)
  - Acute respiratory distress syndrome [Recovered/Resolved]
  - Leukopenia [Recovered/Resolved]
  - Neutropenia [Recovered/Resolved]
  - Haemoptysis [Recovered/Resolved]
  - Nausea [Unknown]
